FAERS Safety Report 8496540-9 (Version None)
Quarter: 2012Q3

REPORT INFORMATION
  Report Type: 
  Country: None (occurrence: None)
  Receive Date: 20120709
  Receipt Date: 20120705
  Transmission Date: 20120928
  Serious: Yes (Death, Hospitalization)
  Sender: FDA-Public Use
  Company Number: US-ELI_LILLY_AND_COMPANY-US201004004427

PATIENT
  Sex: Female

DRUGS (2)
  1. HUMATROPE [Suspect]
     Indication: PITUITARY TUMOUR REMOVAL
     Dosage: 0.6 MG, DAILY (1/D)
  2. HUMATROPE [Suspect]
     Dosage: 0.8 MG, UNKNOWN
     Route: 058
     Dates: end: 20120501

REACTIONS (5)
  - HOSPITALISATION [None]
  - INFECTION [None]
  - INJECTION SITE HAEMATOMA [None]
  - SEPSIS [None]
  - ILL-DEFINED DISORDER [None]
